FAERS Safety Report 8268480-1 (Version None)
Quarter: 2012Q2

REPORT INFORMATION
  Report Type: 
  Country: None (occurrence: None)
  Receive Date: 20120409
  Receipt Date: 20120404
  Transmission Date: 20120825
  Serious: Yes (Death, Hospitalization, Disabling)
  Sender: FDA-Public Use
  Company Number: PHHO2009BE13329

PATIENT
  Sex: Male
  Weight: 71 kg

DRUGS (5)
  1. AFINITOR [Suspect]
     Indication: METASTATIC RENAL CELL CARCINOMA
     Dosage: 10 MG, QD
     Route: 048
     Dates: start: 20090811
  2. AVASTIN [Suspect]
     Indication: METASTATIC RENAL CELL CARCINOMA
     Dosage: 10 MG/KG, QD
     Route: 042
     Dates: start: 20090811
  3. AVASTIN [Suspect]
     Dosage: 10 MG/KG, QD
     Route: 042
     Dates: start: 20091007, end: 20091019
  4. ENOXAPARIN SODIUM [Concomitant]
  5. AFINITOR [Suspect]
     Dosage: 5 MG, QD
     Route: 048
     Dates: start: 20091007, end: 20091018

REACTIONS (8)
  - CHRONIC OBSTRUCTIVE PULMONARY DISEASE [None]
  - ABDOMINAL PAIN [None]
  - EASTERN COOPERATIVE ONCOLOGY GROUP PERFORMANCE STATUS WORSENED [None]
  - STOMATITIS [None]
  - VOMITING [None]
  - NAUSEA [None]
  - CARDIAC FAILURE [None]
  - DECREASED APPETITE [None]
